FAERS Safety Report 13554221 (Version 2)
Quarter: 2017Q2

REPORT INFORMATION
  Report Type: Spontaneous
  Country: US (occurrence: US)
  Receive Date: 20170517
  Receipt Date: 20170602
  Transmission Date: 20170830
  Serious: Yes (Hospitalization)
  Sender: FDA-Public Use
  Company Number: US-SA-2017SA086710

PATIENT
  Age: 63 Year
  Sex: Female
  Weight: 54.4 kg

DRUGS (2)
  1. SOLOSTAR [Suspect]
     Active Substance: DEVICE
     Indication: TYPE 2 DIABETES MELLITUS
     Dates: start: 20170307
  2. LANTUS SOLOSTAR [Suspect]
     Active Substance: INSULIN GLARGINE
     Indication: TYPE 2 DIABETES MELLITUS
     Dosage: START DATE: 6-7 WEEKS AGO DOSE:20 UNIT(S)
     Route: 051
     Dates: start: 20170307

REACTIONS (4)
  - Renal neoplasm [Unknown]
  - Device issue [Unknown]
  - Atypical pneumonia [Unknown]
  - Hyperglycaemia [Unknown]
